FAERS Safety Report 12247892 (Version 6)
Quarter: 2017Q1

REPORT INFORMATION
  Report Type: Spontaneous
  Country: JP (occurrence: JP)
  Receive Date: 20160408
  Receipt Date: 20170317
  Transmission Date: 20170428
  Serious: Yes (Life-Threatening, Other)
  Sender: FDA-Public Use
  Company Number: JP-009507513-1604JPN000651

PATIENT
  Age: 65 Year
  Sex: Male
  Weight: 57 kg

DRUGS (14)
  1. SEVOFLURANE. [Concomitant]
     Active Substance: SEVOFLURANE
     Indication: GENERAL ANAESTHESIA
     Dosage: UNK
     Route: 055
     Dates: start: 20160329, end: 20160329
  2. PENTAGIN [Concomitant]
     Active Substance: PENTAZOCINE HYDROCHLORIDE
     Dosage: UNK
     Route: 065
  3. RAVONAL [Concomitant]
     Active Substance: THIOPENTAL
     Indication: GENERAL ANAESTHESIA
     Dosage: UNK
     Route: 042
     Dates: start: 20160329, end: 20160329
  4. LAUGHING GAS [Concomitant]
     Active Substance: NITROUS OXIDE
     Indication: GENERAL ANAESTHESIA
     Dosage: UNK
     Route: 055
     Dates: start: 20160329, end: 20160329
  5. SOLULACT D [Concomitant]
     Indication: GENERAL ANAESTHESIA
     Dosage: UNK
     Route: 041
     Dates: start: 20160329, end: 20160329
  6. ATROPINE SULFATE. [Concomitant]
     Active Substance: ATROPINE SULFATE
     Indication: GENERAL ANAESTHESIA
     Dosage: UNK
     Route: 042
  7. CEFAMEZIN ALPHA [Concomitant]
     Active Substance: CEFAZOLIN SODIUM
     Indication: GENERAL ANAESTHESIA
     Dosage: UNK
     Route: 041
     Dates: start: 20160329, end: 20160329
  8. ISOZOL [Concomitant]
     Active Substance: THIAMYLAL SODIUM
     Dosage: UNK
     Route: 065
  9. ATARAX-P [Concomitant]
     Active Substance: HYDROXYZINE HYDROCHLORIDE
     Indication: GENERAL ANAESTHESIA
     Dosage: UNK
     Route: 030
     Dates: start: 20160329, end: 20160329
  10. BRIDION [Suspect]
     Active Substance: SUGAMMADEX
     Indication: NEUROMUSCULAR BLOCKADE REVERSAL
     Route: 042
     Dates: start: 20160329, end: 20160329
  11. SOSEGON [Concomitant]
     Active Substance: PENTAZOCINE
     Indication: GENERAL ANAESTHESIA
     Dosage: UNK
     Route: 042
     Dates: start: 20160329, end: 20160329
  12. PHYSIO 140 [Concomitant]
     Active Substance: CALCIUM GLUCONATE\DEXTROSE\MAGNESIUM CHLORIDE\POTASSIUM CHLORIDE\SODIUM ACETATE\SODIUM CHLORIDE\TRISODIUM CITRATE DIHYDRATE
     Indication: GENERAL ANAESTHESIA
     Dosage: UNK
     Route: 041
     Dates: start: 20160329, end: 20160329
  13. ISODINE [Concomitant]
     Active Substance: POVIDONE-IODINE
     Dosage: UNK
     Route: 065
     Dates: start: 20160329, end: 20160329
  14. ESLAX INTRAVENOUS 25MG/2.5ML [Concomitant]
     Active Substance: ROCURONIUM BROMIDE
     Indication: NEUROMUSCULAR BLOCKING THERAPY
     Dosage: UNK
     Route: 042
     Dates: start: 20160329, end: 20160329

REACTIONS (6)
  - Blood pressure decreased [Recovering/Resolving]
  - Anaphylactic shock [Recovering/Resolving]
  - Post procedural haemorrhage [Recovering/Resolving]
  - Anaemia [Recovering/Resolving]
  - Circulatory collapse [Recovering/Resolving]
  - Hypoxia [Recovering/Resolving]

NARRATIVE: CASE EVENT DATE: 20160329
